FAERS Safety Report 25484541 (Version 1)
Quarter: 2025Q2

REPORT INFORMATION
  Report Type: Spontaneous
  Country: US (occurrence: None)
  Receive Date: 20250626
  Receipt Date: 20250626
  Transmission Date: 20250717
  Serious: Yes (Hospitalization)
  Sender: FDA-CTU
  Company Number: None

PATIENT
  Age: 44 Year
  Sex: Female

DRUGS (7)
  1. EPIDIOLEX [Suspect]
     Active Substance: CANNABIDIOL
     Indication: Epilepsy
     Route: 048
     Dates: start: 20221128
  2. EPIDIOLEX [Suspect]
     Active Substance: CANNABIDIOL
     Route: 048
     Dates: start: 20221128
  3. PREGABALIN 100MG CAPSULES [Concomitant]
  4. DEPAKENE 250MG/5ML SYRUP [Concomitant]
  5. DORZOLAMIDE-TIMOLOL OPHTH SOLN 10ML [Concomitant]
  6. TEGRETOL SUSP 100MG/5ML( [Concomitant]
  7. POLYETHYLENE GLYCOL 3350 [Concomitant]
     Active Substance: POLYETHYLENE GLYCOL 3350

REACTIONS (3)
  - Headache [None]
  - Neuralgia [None]
  - Nerve compression [None]

NARRATIVE: CASE EVENT DATE: 20250504
